FAERS Safety Report 7769448-1 (Version None)
Quarter: 2011Q3

REPORT INFORMATION
  Report Type: 
  Country: None (occurrence: None)
  Receive Date: 20110922
  Receipt Date: 20110112
  Transmission Date: 20111222
  Serious: No
  Sender: FDA-Public Use
  Company Number: US-ASTRAZENECA-2011SE02080

PATIENT
  Age: 86 Year
  Sex: Female

DRUGS (7)
  1. PROZAC [Concomitant]
  2. SEROQUEL [Suspect]
     Indication: ANGER
     Route: 048
     Dates: start: 20100101
  3. SEROQUEL [Suspect]
     Route: 048
     Dates: start: 20100101
  4. ARICEPT [Concomitant]
  5. NAMENDA [Concomitant]
  6. TEMAZEPAM [Concomitant]
  7. SEROQUEL [Suspect]
     Route: 048
     Dates: start: 20100101

REACTIONS (5)
  - SOMNOLENCE [None]
  - ANGER [None]
  - DRUG INEFFECTIVE [None]
  - THERAPEUTIC RESPONSE UNEXPECTED [None]
  - BLOOD PRESSURE [None]
